FAERS Safety Report 6012411-1 (Version None)
Quarter: 2008Q4

REPORT INFORMATION
  Report Type: 
  Country: None (occurrence: None)
  Receive Date: 20081218
  Receipt Date: 20081015
  Transmission Date: 20090506
  Serious: No
  Sender: FDA-Public Use
  Company Number: US-ASTRAZENECA-2008UW22721

PATIENT
  Age: 46 Year
  Sex: Female
  Weight: 102.1 kg

DRUGS (6)
  1. SYMBICORT [Suspect]
     Indication: ASTHMA
     Route: 055
     Dates: start: 20080806
  2. ALBUTEROL [Concomitant]
  3. SYNTHROID [Concomitant]
  4. SINGULAIR [Concomitant]
  5. DIGOXIN [Concomitant]
  6. CARDIAZEM [Concomitant]

REACTIONS (1)
  - ALOPECIA [None]
